FAERS Safety Report 13143160 (Version 2)
Quarter: 2017Q2

REPORT INFORMATION
  Report Type: Spontaneous
  Country: US (occurrence: US)
  Receive Date: 20170123
  Receipt Date: 20170505
  Transmission Date: 20170830
  Serious: Yes (Hospitalization)
  Sender: FDA-Public Use
  Company Number: PHEH2017US002277

PATIENT
  Age: 80 Year
  Sex: Female

DRUGS (1)
  1. GLEEVEC [Suspect]
     Active Substance: IMATINIB MESYLATE
     Indication: NEOPLASM MALIGNANT
     Dosage: 400 MG, QD
     Route: 048
     Dates: start: 20150406

REACTIONS (4)
  - Abdominal pain [Unknown]
  - Pneumonia [Unknown]
  - Cholelithiasis [Unknown]
  - Product use in unapproved indication [Unknown]

NARRATIVE: CASE EVENT DATE: 20161231
